FAERS Safety Report 5555048-0 (Version None)
Quarter: 2007Q4

REPORT INFORMATION
  Report Type: 
  Country: None (occurrence: None)
  Receive Date: 20071213
  Receipt Date: 20070808
  Transmission Date: 20080405
  Serious: No
  Sender: FDA-Public Use
  Company Number: US-AMGEN-KDL232180

PATIENT
  Sex: Female

DRUGS (5)
  1. ENBREL [Suspect]
     Indication: RHEUMATOID ARTHRITIS
     Route: 058
     Dates: start: 20060728, end: 20070719
  2. METHOTREXATE [Concomitant]
     Dates: start: 20060616
  3. PREDNISONE [Concomitant]
     Dates: start: 20061031
  4. TYLENOL [Concomitant]
     Dates: start: 20070616
  5. MOBIC [Concomitant]
     Dates: start: 20060427

REACTIONS (3)
  - ARTHRALGIA [None]
  - DRUG INEFFECTIVE [None]
  - JOINT STIFFNESS [None]
